FAERS Safety Report 17810572 (Version 1)
Quarter: 2020Q2

REPORT INFORMATION
  Report Type: Spontaneous
  Country: DE (occurrence: DE)
  Receive Date: 20200521
  Receipt Date: 20200521
  Transmission Date: 20200714
  Serious: Yes (Life-Threatening, Hospitalization, Other)
  Sender: FDA-Public Use
  Company Number: DE-SA-2020SA130214

PATIENT
  Age: 65 Year
  Sex: Male

DRUGS (3)
  1. IRBESARTAN. [Suspect]
     Active Substance: IRBESARTAN
     Dosage: 150 MG, Q12H (1-0-1-0)
  2. BISOPROLOL [Concomitant]
     Active Substance: BISOPROLOL
     Dosage: 2.5 MG, Q12H (5 MG, 0.5-0-0.5-0)
  3. HYDROCHLOROTHIAZIDE. [Suspect]
     Active Substance: HYDROCHLOROTHIAZIDE
     Dosage: 12.5 MG, 5MG (1-0-1-0)

REACTIONS (4)
  - Epistaxis [Unknown]
  - Bradycardia [Unknown]
  - General physical health deterioration [Unknown]
  - Oedema peripheral [Unknown]
